FAERS Safety Report 15330051 (Version 1)
Quarter: 2018Q3

REPORT INFORMATION
  Report Type: Spontaneous
  Country: US (occurrence: US)
  Receive Date: 20180824
  Receipt Date: 20180824
  Transmission Date: 20181010
  Serious: Yes (Life-Threatening, Disabling)
  Sender: FDA-Public Use
  Company Number: None

PATIENT
  Age: 21 Year
  Sex: Female
  Weight: 47.63 kg

DRUGS (1)
  1. MIRENA [Suspect]
     Active Substance: LEVONORGESTREL
     Dates: start: 20180816, end: 20180823

REACTIONS (18)
  - Back pain [None]
  - Vulvovaginal discomfort [None]
  - Vulvovaginal pruritus [None]
  - Muscle spasms [None]
  - Abdominal pain [None]
  - Anxiety [None]
  - Dizziness [None]
  - Abdominal distension [None]
  - Arthralgia [None]
  - Device dislocation [None]
  - Medical device pain [None]
  - Pain [None]
  - Device expulsion [None]
  - Pelvic pain [None]
  - Headache [None]
  - Nausea [None]
  - Pruritus [None]
  - Palpitations [None]

NARRATIVE: CASE EVENT DATE: 20180823
